FAERS Safety Report 14111471 (Version 2)
Quarter: 2018Q2

REPORT INFORMATION
  Report Type: Spontaneous
  Country: US (occurrence: US)
  Receive Date: 20171020
  Receipt Date: 20180518
  Transmission Date: 20180711
  Serious: Yes (Death, Life-Threatening, Hospitalization)
  Sender: FDA-Public Use
  Company Number: US-B.I. PHARMACEUTICALS,INC./RIDGEFIELD-2017-BI-056938

PATIENT
  Age: 68 Year
  Sex: Male
  Weight: 102.05 kg

DRUGS (2)
  1. PRADAXA [Suspect]
     Active Substance: DABIGATRAN ETEXILATE MESYLATE
     Indication: ATRIAL FIBRILLATION
     Route: 065
     Dates: start: 20120404, end: 20141019
  2. ASPIRIN. [Concomitant]
     Active Substance: ASPIRIN
     Indication: PRODUCT USED FOR UNKNOWN INDICATION
     Dosage: ON REGULAR BASIS
     Route: 065

REACTIONS (1)
  - Cerebral haemorrhage [Fatal]

NARRATIVE: CASE EVENT DATE: 20141019
